FAERS Safety Report 7918275-0 (Version None)
Quarter: 2011Q4

REPORT INFORMATION
  Report Type: 
  Country: None (occurrence: None)
  Receive Date: 20111116
  Receipt Date: 20111108
  Transmission Date: 20120403
  Serious: Yes (Hospitalization)
  Sender: FDA-Public Use
  Company Number: JP-GLAXOSMITHKLINE-B0761562A

PATIENT
  Sex: Male
  Weight: 68 kg

DRUGS (8)
  1. HALCION [Concomitant]
     Dosage: .25MG PER DAY
     Route: 048
     Dates: start: 20010914, end: 20011004
  2. METHYCOBAL [Concomitant]
     Dosage: 1500MCG PER DAY
     Route: 048
     Dates: start: 20010821, end: 20011011
  3. ALKERAN [Suspect]
     Indication: STEM CELL TRANSPLANT
     Dosage: 100MGM2 PER DAY
     Route: 042
     Dates: start: 20011002, end: 20011003
  4. ZOFRAN [Concomitant]
     Dosage: 8MG PER DAY
     Dates: start: 20011002, end: 20011003
  5. MAGNESIUM OXIDE [Concomitant]
     Dosage: 3G PER DAY
     Route: 048
     Dates: start: 20010827, end: 20011011
  6. GLAKAY [Concomitant]
     Dosage: 45MG PER DAY
     Route: 048
     Dates: start: 20010827, end: 20011011
  7. FAMOTIDINE [Concomitant]
     Dosage: 40MG PER DAY
     Route: 048
     Dates: start: 20010827, end: 20011011
  8. VOLTAREN-XR [Concomitant]
     Dosage: 75MG PER DAY
     Route: 048
     Dates: start: 20010827, end: 20011004

REACTIONS (4)
  - STOMATITIS [None]
  - INFECTION [None]
  - POST HERPETIC NEURALGIA [None]
  - HERPES ZOSTER [None]
